FAERS Safety Report 8003885-5 (Version None)
Quarter: 2011Q4

REPORT INFORMATION
  Report Type: 
  Country: None (occurrence: None)
  Receive Date: 20111222
  Receipt Date: 20111219
  Transmission Date: 20120403
  Serious: Yes (Hospitalization)
  Sender: FDA-Public Use
  Company Number: BR-PFIZER INC-2011308299

PATIENT
  Age: 82 Year
  Sex: Male

DRUGS (5)
  1. PLAVIX [Concomitant]
     Dosage: UNK
     Dates: start: 20100101
  2. LIPITOR [Suspect]
     Indication: BLOOD CHOLESTEROL INCREASED
     Dosage: 40 MG, 1X/DAY
     Route: 048
     Dates: start: 20090101, end: 20090101
  3. CARVEDILOL [Concomitant]
     Dosage: UNK
     Dates: start: 20090101
  4. AMLODIPINE [Concomitant]
     Dosage: UNK
     Dates: start: 20080101
  5. LIPITOR [Suspect]
     Dosage: 40 MG, 1X/DAY
     Route: 048
     Dates: start: 20111101

REACTIONS (2)
  - CAROTID ARTERY OCCLUSION [None]
  - BLOOD CHOLESTEROL INCREASED [None]
